FAERS Safety Report 16676654 (Version 1)
Quarter: 2019Q3

REPORT INFORMATION
  Report Type: Spontaneous
  Country: GB (occurrence: GB)
  Receive Date: 20190807
  Receipt Date: 20190807
  Transmission Date: 20191004
  Serious: Yes (Other)
  Sender: FDA-Public Use
  Company Number: GB-AUROBINDO-AUR-APL-2019-045836

PATIENT

DRUGS (7)
  1. METRONIDAZOLE TABLET [Suspect]
     Active Substance: METRONIDAZOLE
     Indication: TOOTH INFECTION
     Dosage: 400 MILLIGRAM, AS NECESSARY
     Route: 065
  2. AMOXICILLIN. [Concomitant]
     Active Substance: AMOXICILLIN
     Indication: TOOTH INFECTION
     Dosage: UNK
     Route: 065
  3. TRANEXAMIC ACID. [Concomitant]
     Active Substance: TRANEXAMIC ACID
     Indication: PRODUCT USED FOR UNKNOWN INDICATION
     Dosage: 6 DOSAGE FORM, DAILY
     Route: 065
     Dates: start: 20190214
  4. FOSTAIR [Concomitant]
     Active Substance: BECLOMETHASONE\FORMOTEROL
     Indication: PRODUCT USED FOR UNKNOWN INDICATION
     Dosage: 4 DOSAGE FORM, DAILY
     Route: 065
     Dates: start: 20190218
  5. SALBUTAMOL [Concomitant]
     Active Substance: ALBUTEROL
     Indication: PRODUCT USED FOR UNKNOWN INDICATION
     Dosage: 2 DOSAGE FORM AS NECESSARY
     Route: 055
     Dates: start: 20190218
  6. TRAMADOL. [Concomitant]
     Active Substance: TRAMADOL
     Indication: PRODUCT USED FOR UNKNOWN INDICATION
     Dosage: UNK, (TAKE 1 OR 2 AS DIRECTED)
     Route: 065
     Dates: start: 20190214
  7. CINNARIZINE [Concomitant]
     Active Substance: CINNARIZINE
     Indication: PRODUCT USED FOR UNKNOWN INDICATION
     Dosage: 2 DOSAGE FORM, AS NECESSARY (TWO 3 TIMES A DAY)
     Route: 065
     Dates: start: 20190214

REACTIONS (4)
  - Speech disorder [Unknown]
  - Lip swelling [Recovered/Resolved]
  - Hypersensitivity [Unknown]
  - Paraesthesia [Unknown]
